FAERS Safety Report 8055763-3 (Version None)
Quarter: 2012Q1

REPORT INFORMATION
  Report Type: 
  Country: None (occurrence: None)
  Receive Date: 20120119
  Receipt Date: 20120113
  Transmission Date: 20120608
  Serious: Yes (Hospitalization)
  Sender: FDA-Public Use
  Company Number: US-GILEAD-2012-0049394

PATIENT
  Sex: Male

DRUGS (2)
  1. LETAIRIS [Suspect]
     Dosage: 5 MG, UNK
     Route: 048
     Dates: start: 20110422
  2. LETAIRIS [Suspect]
     Indication: PRODUCT USED FOR UNKNOWN INDICATION
     Dosage: 10 UNK, UNK
     Route: 048

REACTIONS (1)
  - RENAL FAILURE CHRONIC [None]
